FAERS Safety Report 12314188 (Version 1)
Quarter: 2016Q2

REPORT INFORMATION
  Report Type: Spontaneous
  Country: US (occurrence: None)
  Receive Date: 20160427
  Receipt Date: 20160427
  Transmission Date: 20160815
  Serious: Yes (Hospitalization)
  Sender: FDA-Public Use
  Company Number: None

PATIENT
  Age: 63 Year
  Sex: Male
  Weight: 59.9 kg

DRUGS (13)
  1. NOVOLOG [Concomitant]
     Active Substance: INSULIN ASPART
  2. CLONAZEPAM (KLONOPIN) [Concomitant]
  3. LIDODERM [Concomitant]
     Active Substance: LIDOCAINE
  4. SULFAMEHOXAZOLE-TRIMETHOPRIM-SS (BACTRIM) [Concomitant]
  5. BUDESONIDE-FORMOTERAL (SYMBICORT) [Concomitant]
  6. NEXIUM [Concomitant]
     Active Substance: ESOMEPRAZOLE MAGNESIUM
  7. MELATONIN [Concomitant]
     Active Substance: MELATONIN
  8. ALBUTEROL (PROVENTIL) [Concomitant]
  9. PEMBROLIZUMAB, 100MG/4ML MERCK [Suspect]
     Active Substance: PEMBROLIZUMAB
     Indication: MESOTHELIOMA
     Route: 041
     Dates: start: 20150816, end: 20160217
  10. DRONABINOL (MARINOL) [Concomitant]
  11. HEXAVITAMIN [Concomitant]
  12. REMERON [Concomitant]
     Active Substance: MIRTAZAPINE
  13. ASPIRIN. [Concomitant]
     Active Substance: ASPIRIN

REACTIONS (2)
  - Pneumonitis [None]
  - Dyspnoea [None]

NARRATIVE: CASE EVENT DATE: 20160425
